FAERS Safety Report 9450121 (Version 1)
Quarter: 2013Q3

REPORT INFORMATION
  Report Type: Spontaneous
  Country: FR (occurrence: FR)
  Receive Date: 20130809
  Receipt Date: 20130809
  Transmission Date: 20140515
  Serious: Yes (Hospitalization)
  Sender: FDA-Public Use
  Company Number: FR-PFIZER INC-2013228381

PATIENT
  Age: 35 Year
  Sex: Female

DRUGS (1)
  1. FELDENE [Suspect]
     Indication: BACK PAIN
     Dosage: ONE DOSE A DAY
     Dates: start: 20130709, end: 20130713

REACTIONS (1)
  - Oligohydramnios [Recovering/Resolving]
